FAERS Safety Report 23982372 (Version 1)
Quarter: 2024Q2

REPORT INFORMATION
  Report Type: Spontaneous
  Country: CH (occurrence: CH)
  Receive Date: 20240617
  Receipt Date: 20240617
  Transmission Date: 20240716
  Serious: Yes (Other)
  Sender: FDA-Public Use
  Company Number: CH-SM-2024-13364

PATIENT
  Age: 36 Year
  Sex: Male
  Weight: 49 kg

DRUGS (7)
  1. ESCITALOPRAM [Suspect]
     Active Substance: ESCITALOPRAM OXALATE
     Indication: Depression
     Dosage: 1-0-0, ESCITALOPRAM MEPHA
     Route: 048
     Dates: start: 20240417
  2. HERBALS [Concomitant]
     Active Substance: HERBALS
     Indication: Product used for unknown indication
     Route: 048
     Dates: start: 202212
  3. LAVENDER [Concomitant]
     Active Substance: ALCOHOL
     Indication: Product used for unknown indication
     Dosage: 0-0-0-1, PRODUCT: LAITEA, NOT AVAILABLE IN THE PROUDCT BROWSER
     Route: 048
     Dates: start: 202212
  4. FERROUS SULFATE [Concomitant]
     Active Substance: FERROUS SULFATE
     Indication: Iron deficiency
     Dosage: 1-0-0
     Route: 048
     Dates: start: 202212
  5. CHLORPROTHIXENE [Suspect]
     Active Substance: CHLORPROTHIXENE
     Indication: Product used for unknown indication
     Dosage: 15 MG 0-1-1, PLUS 60 MG DAILY ON DEMAND. UNKNOWN HOW MUCH WAS TAKEN.
     Route: 048
     Dates: start: 20240420
  6. CHLORPROTHIXENE [Suspect]
     Active Substance: CHLORPROTHIXENE
     Indication: Product used for unknown indication
     Dosage: DOSAGE UNKNOWN
     Route: 048
     Dates: start: 20221213, end: 20240310
  7. CHLORPROTHIXENE [Suspect]
     Active Substance: CHLORPROTHIXENE
     Indication: Product used for unknown indication
     Dosage: 15 MG 3-1-0
     Route: 048
     Dates: start: 20240311, end: 20240419

REACTIONS (4)
  - Musculoskeletal stiffness [Not Recovered/Not Resolved]
  - Hyperhidrosis [Not Recovered/Not Resolved]
  - Mobility decreased [Not Recovered/Not Resolved]
  - Tremor [Not Recovered/Not Resolved]

NARRATIVE: CASE EVENT DATE: 20240514
